FAERS Safety Report 8619604-5 (Version None)
Quarter: 2012Q3

REPORT INFORMATION
  Report Type: 
  Country: None (occurrence: None)
  Receive Date: 20120824
  Receipt Date: 20120821
  Transmission Date: 20120928
  Serious: Yes (Death)
  Sender: FDA-Public Use
  Company Number: US-B.I. PHARMACEUTICALS,INC./RIDGEFIELD-2012-BP-15698BP

PATIENT
  Sex: Male
  Weight: 83.46 kg

DRUGS (6)
  1. PRADAXA [Suspect]
     Indication: ATRIAL FIBRILLATION
     Dosage: 300 MG
     Dates: start: 20110107, end: 20120711
  2. BETA BLOCKERS [Concomitant]
  3. METOPROLOL TARTRATE [Concomitant]
     Indication: HYPERTENSION
     Dates: start: 20090420
  4. ASPIRIN [Concomitant]
     Dosage: 81 MG
     Dates: start: 20110909
  5. LISINOPRIL [Concomitant]
     Dates: start: 20120203
  6. SIMVASTATIN [Concomitant]
     Dates: start: 20110909

REACTIONS (1)
  - CEREBROVASCULAR ACCIDENT [None]
